FAERS Safety Report 4973228-X (Version None)
Quarter: 2006Q2

REPORT INFORMATION
  Report Type: 
  Country: None (occurrence: None)
  Receive Date: 20060414
  Receipt Date: 20051025
  Transmission Date: 20061013
  Serious: Yes (Hospitalization, Disabling)
  Sender: FDA-Public Use
  Company Number: US-MERCK-0510USA09205

PATIENT
  Age: 68 Year
  Sex: Male
  Weight: 77 kg

DRUGS (4)
  1. VIOXX [Suspect]
     Indication: PAIN
     Route: 048
     Dates: start: 20011003, end: 20040901
  2. VIOXX [Suspect]
     Indication: OSTEOARTHRITIS
     Route: 048
     Dates: start: 20011003, end: 20040901
  3. BEN-GAY [Concomitant]
     Route: 065
  4. ASPERCREME [Concomitant]
     Route: 065

REACTIONS (16)
  - ANAEMIA [None]
  - ANXIETY [None]
  - CARDIOMEGALY [None]
  - CAROTID ARTERY ATHEROMA [None]
  - CEREBRAL ISCHAEMIA [None]
  - CEREBROVASCULAR ACCIDENT [None]
  - CHEST PAIN [None]
  - CORONARY ARTERY OCCLUSION [None]
  - DILATATION ATRIAL [None]
  - FALL [None]
  - GASTROOESOPHAGEAL REFLUX DISEASE [None]
  - HYPOTENSION [None]
  - SINUS BRADYCARDIA [None]
  - STRESS [None]
  - SYNCOPE [None]
  - VENTRICULAR HYPERTROPHY [None]
